FAERS Safety Report 7485426-4 (Version None)
Quarter: 2011Q2

REPORT INFORMATION
  Report Type: 
  Country: None (occurrence: None)
  Receive Date: 20110509
  Receipt Date: 20110428
  Transmission Date: 20111010
  Serious: Yes (Hospitalization)
  Sender: FDA-Public Use
  Company Number: 2010003708

PATIENT
  Age: 53 Year
  Sex: Male
  Weight: 59 kg

DRUGS (22)
  1. SORAFENIB (TABLET) [Suspect]
     Indication: HEPATIC NEOPLASM MALIGNANT
     Dosage: (400 MG,BID),ORAL
     Route: 048
     Dates: start: 20100805, end: 20100824
  2. SORAFENIB (TABLET) [Suspect]
     Indication: HEPATIC NEOPLASM MALIGNANT
     Dosage: (400 MG,BID),ORAL
     Route: 048
     Dates: start: 20100826, end: 20100902
  3. SORAFENIB (TABLET) [Suspect]
     Indication: HEPATIC NEOPLASM MALIGNANT
     Dosage: (400 MG,BID),ORAL
     Route: 048
     Dates: start: 20100903, end: 20100926
  4. XERIAL [Concomitant]
  5. IOMERON-150 [Concomitant]
  6. ERYTHROMYCIN [Concomitant]
  7. DUPHALAC [Concomitant]
  8. LOVENOX [Concomitant]
  9. IMODIUM [Concomitant]
  10. DIPROSONE [Concomitant]
  11. TRAMADOL HYDROCHLORIDE [Concomitant]
  12. ZEFFIX (LAMIVUDINE) [Concomitant]
  13. DEXERYL (OSINEX) [Concomitant]
  14. SALICYLVASELIN (SALICYLIC ACID) [Concomitant]
  15. ALDACTONE [Concomitant]
  16. LASILIX (FUROSHMIDE) [Concomitant]
  17. PROPRANOLOL [Concomitant]
  18. ERLOTINIB HYDROCHLORIDE [Suspect]
     Indication: HEPATIC NEOPLASM MALIGNANT
     Dosage: (150 MG,QD),ORAL, (100 MG,QD),0RAL
     Route: 048
     Dates: start: 20100805, end: 20100824
  19. ERLOTINIB HYDROCHLORIDE [Suspect]
     Indication: HEPATIC NEOPLASM MALIGNANT
     Dosage: (150 MG,QD),ORAL, (100 MG,QD),0RAL
     Route: 048
     Dates: start: 20100824, end: 20100829
  20. DOLIPRAN (PARACETAMOL) [Concomitant]
  21. ROCEPHIN (CEIFTRIAXONE SODIUM) [Concomitant]
  22. NOROXIN [Concomitant]

REACTIONS (5)
  - ASCITES [None]
  - LOWER GASTROINTESTINAL HAEMORRHAGE [None]
  - VISUAL ACUITY REDUCED [None]
  - GENERAL PHYSICAL HEALTH DETERIORATION [None]
  - ABDOMINAL PAIN [None]
